FAERS Safety Report 7414049-8 (Version None)
Quarter: 2011Q2

REPORT INFORMATION
  Report Type: 
  Country: None (occurrence: None)
  Receive Date: 20110414
  Receipt Date: 20110411
  Transmission Date: 20111010
  Serious: No
  Sender: FDA-Public Use
  Company Number: US-PFIZER INC-2011080255

PATIENT
  Sex: Female

DRUGS (4)
  1. METOPROLOL [Concomitant]
     Indication: PALPITATIONS
  2. CHANTIX [Suspect]
     Indication: SMOKING CESSATION THERAPY
     Dosage: 0.5 MG, 1X/DAY
     Route: 048
     Dates: start: 20110411
  3. METOPROLOL [Concomitant]
     Indication: SINUS TACHYCARDIA
     Dosage: 50 MG, 1X/DAY
     Route: 048
  4. NEURONTIN [Concomitant]
     Indication: BACK INJURY
     Dosage: 1200 MG, 3X/DAY
     Route: 048

REACTIONS (1)
  - PALPITATIONS [None]
